FAERS Safety Report 23324582 (Version 1)
Quarter: 2023Q4

REPORT INFORMATION
  Report Type: Spontaneous
  Country: US (occurrence: US)
  Receive Date: 20231221
  Receipt Date: 20231221
  Transmission Date: 20240110
  Serious: Yes (Other)
  Sender: FDA-Public Use
  Company Number: US-SANDOZ-SDZ2023US069197

PATIENT
  Age: 67 Year
  Sex: Female

DRUGS (2)
  1. ENOXAPARIN [Suspect]
     Active Substance: ENOXAPARIN
     Indication: Gastroenteritis
     Route: 042
  2. VANCOMYCIN [Concomitant]
     Active Substance: VANCOMYCIN
     Indication: Product used for unknown indication
     Route: 048

REACTIONS (1)
  - Adrenal insufficiency [Recovering/Resolving]
